FAERS Safety Report 8408819-7 (Version None)
Quarter: 2012Q2

REPORT INFORMATION
  Report Type: 
  Country: None (occurrence: None)
  Receive Date: 20120604
  Receipt Date: 20120226
  Transmission Date: 20120825
  Serious: No
  Sender: FDA-Public Use
  Company Number: US-NOVEN-12US004175

PATIENT
  Sex: Female
  Weight: 21.769 kg

DRUGS (1)
  1. DAYTRANA [Suspect]
     Indication: ATTENTION DEFICIT/HYPERACTIVITY DISORDER
     Dosage: 10 MG, QD
     Route: 062
     Dates: start: 20120226, end: 20120226

REACTIONS (7)
  - OFF LABEL USE [None]
  - MUSCLE TWITCHING [None]
  - FLUSHING [None]
  - REPETITIVE SPEECH [None]
  - SWELLING FACE [None]
  - PRURITUS [None]
  - AGITATION [None]
